FAERS Safety Report 9889142 (Version 6)
Quarter: 2014Q2

REPORT INFORMATION
  Report Type: Spontaneous
  Country: US (occurrence: US)
  Receive Date: 20140211
  Receipt Date: 20140623
  Transmission Date: 20141212
  Serious: Yes (Hospitalization, Disabling, Other)
  Sender: FDA-Public Use
  Company Number: US-009507513-1204USA04183

PATIENT
  Sex: Female
  Weight: 62.13 kg

DRUGS (4)
  1. FOSAMAX [Suspect]
     Indication: OSTEOPOROSIS
     Dosage: 70 MG, QW
     Route: 048
     Dates: end: 2012
  2. FOSAMAX [Suspect]
     Dosage: 10 MG, QD
     Route: 048
  3. FOSAMAX [Suspect]
     Route: 048
  4. ALENDRONATE SODIUM [Suspect]
     Dosage: 70 MG, UNK
     Route: 048
     Dates: start: 20080414, end: 20090420

REACTIONS (17)
  - Femur fracture [Unknown]
  - Intramedullary rod insertion [Unknown]
  - Bone disorder [Unknown]
  - Vascular insufficiency [Unknown]
  - Peripheral arterial occlusive disease [Unknown]
  - Peripheral artery stent insertion [Unknown]
  - Peripheral artery bypass [Unknown]
  - Hypothyroidism [Unknown]
  - Hypertension [Unknown]
  - Chronic obstructive pulmonary disease [Unknown]
  - Large intestine polyp [Unknown]
  - Arthritis [Unknown]
  - Spinal osteoarthritis [Unknown]
  - Spondyloarthropathy [Unknown]
  - Radiculopathy [Unknown]
  - Bone disorder [Unknown]
  - Medical device removal [Unknown]
